FAERS Safety Report 5927113-7 (Version None)
Quarter: 2008Q4

REPORT INFORMATION
  Report Type: 
  Country: None (occurrence: None)
  Receive Date: 20081022
  Receipt Date: 20081015
  Transmission Date: 20090506
  Serious: Yes (Hospitalization)
  Sender: FDA-Public Use
  Company Number: US-B.I. PHARMACEUTICALS,INC./RIDGEFIELD-2008-BP-14547BP

PATIENT
  Sex: Female

DRUGS (7)
  1. MIRAPEX [Suspect]
     Indication: RESTLESS LEGS SYNDROME
     Route: 048
     Dates: start: 20060401, end: 20080911
  2. MAG-64 [Concomitant]
  3. METFORMIN HYDROCHLORIDE [Concomitant]
  4. AVAPRO [Concomitant]
  5. CYMBALTA [Concomitant]
     Route: 048
  6. AMILORIDE HYDROCHLORIDE [Concomitant]
  7. ACTOS [Concomitant]

REACTIONS (7)
  - BREAKTHROUGH PAIN [None]
  - LIMB DISCOMFORT [None]
  - MUSCLE SPASMS [None]
  - PATHOLOGICAL GAMBLING [None]
  - PNEUMONIA [None]
  - RESTLESS LEGS SYNDROME [None]
  - RESTLESSNESS [None]
